FAERS Safety Report 7402704-5 (Version None)
Quarter: 2011Q2

REPORT INFORMATION
  Report Type: 
  Country: None (occurrence: None)
  Receive Date: 20110408
  Receipt Date: 20110331
  Transmission Date: 20111010
  Serious: Yes (Other)
  Sender: FDA-Public Use
  Company Number: CA-ROCHE-743106

PATIENT
  Sex: Female
  Weight: 45.4 kg

DRUGS (3)
  1. TOCILIZUMAB [Suspect]
     Dosage: FORM: INFUSION
     Route: 042
     Dates: start: 20101118
  2. TOCILIZUMAB [Suspect]
     Indication: RHEUMATOID ARTHRITIS
     Route: 042
     Dates: start: 20100923
  3. CORTISONE [Concomitant]

REACTIONS (6)
  - ROAD TRAFFIC ACCIDENT [None]
  - CONCUSSION [None]
  - PRURITUS [None]
  - MUSCULOSKELETAL PAIN [None]
  - ARTHRALGIA [None]
  - COLITIS [None]
